FAERS Safety Report 8421212-6 (Version None)
Quarter: 2012Q2

REPORT INFORMATION
  Report Type: 
  Country: None (occurrence: None)
  Receive Date: 20120323
  Receipt Date: 20110707
  Transmission Date: 20120825
  Serious: Yes (Other)
  Sender: FDA-Public Use
  Company Number: 163-21880-11070808

PATIENT
  Age: 71 Year
  Sex: Male
  Weight: 85.2762 kg

DRUGS (7)
  1. SUPPLEMENTS (ALL OTHER THERAPEUTIC PRODUCTS) [Concomitant]
  2. FOLIC ACID [Concomitant]
  3. VITAMIN B (VITAMIN B) [Concomitant]
  4. FLOMAX [Concomitant]
  5. REVLIMID [Suspect]
     Indication: MYELODYSPLASTIC SYNDROME
     Dosage: 10 MG, 1 IN 1 D, PO ; 5 MG, 1 IN 2 D, PO ; 5 MG, EVERY 2-3 DAYS, PO
     Route: 048
     Dates: start: 20110401
  6. REVLIMID [Suspect]
     Indication: MYELODYSPLASTIC SYNDROME
     Dosage: 10 MG, 1 IN 1 D, PO ; 5 MG, 1 IN 2 D, PO ; 5 MG, EVERY 2-3 DAYS, PO
     Route: 048
     Dates: start: 20110501
  7. REVLIMID [Suspect]
     Indication: MYELODYSPLASTIC SYNDROME
     Dosage: 10 MG, 1 IN 1 D, PO ; 5 MG, 1 IN 2 D, PO ; 5 MG, EVERY 2-3 DAYS, PO
     Route: 048
     Dates: start: 20110501

REACTIONS (5)
  - PLATELET COUNT DECREASED [None]
  - HAEMOGLOBIN DECREASED [None]
  - FATIGUE [None]
  - CONSTIPATION [None]
  - BACK PAIN [None]
